FAERS Safety Report 6727593-3 (Version None)
Quarter: 2010Q2

REPORT INFORMATION
  Report Type: 
  Country: None (occurrence: None)
  Receive Date: 20100517
  Receipt Date: 20100428
  Transmission Date: 20101027
  Serious: No
  Sender: FDA-Public Use
  Company Number: US-BAYER-201017223NA

PATIENT
  Sex: Female

DRUGS (3)
  1. ULTRAVIST 300 [Suspect]
     Indication: DRUG USE FOR UNKNOWN INDICATION
     Route: 042
     Dates: start: 20100305, end: 20100305
  2. STEROIDS [Concomitant]
     Indication: PREMEDICATION
     Dates: start: 20100304
  3. BENADRYL [Concomitant]
     Indication: PREMEDICATION
     Route: 042
     Dates: start: 20100305

REACTIONS (2)
  - RASH [None]
  - URTICARIA [None]
